FAERS Safety Report 12466367 (Version 2)
Quarter: 2016Q2

REPORT INFORMATION
  Report Type: Spontaneous
  Country: JP (occurrence: JP)
  Receive Date: 20160615
  Receipt Date: 20160623
  Transmission Date: 20160815
  Serious: Yes (Hospitalization, Other)
  Sender: FDA-Public Use
  Company Number: JP-TAKEDA-2016TJP011712

PATIENT
  Age: 60 Year
  Sex: Male

DRUGS (3)
  1. MICOMBI COMBINATION [Concomitant]
     Active Substance: HYDROCHLOROTHIAZIDE\TELMISARTAN
     Dosage: UNK
     Route: 048
  2. LIOVEL COMBINATION TABLETS LD [Suspect]
     Active Substance: ALOGLIPTIN BENZOATE\PIOGLITAZONE HYDROCHLORIDE
     Indication: TYPE 2 DIABETES MELLITUS
     Dosage: 1 DF, UNK
     Route: 048
     Dates: start: 201501, end: 20160606
  3. HALCION [Concomitant]
     Active Substance: TRIAZOLAM
     Dosage: UNK
     Route: 048

REACTIONS (1)
  - Intestinal obstruction [Recovered/Resolved]

NARRATIVE: CASE EVENT DATE: 20160607
